FAERS Safety Report 5546959-0 (Version None)
Quarter: 2007Q4

REPORT INFORMATION
  Report Type: 
  Country: None (occurrence: None)
  Receive Date: 20071211
  Receipt Date: 20071129
  Transmission Date: 20080405
  Serious: Yes (Other)
  Sender: FDA-Public Use
  Company Number: PFIZER INC-2007100762

PATIENT
  Sex: Female
  Weight: 54.545 kg

DRUGS (1)
  1. NORVASC [Suspect]
     Indication: HYPERTENSION
     Route: 048
     Dates: start: 20031119, end: 20041126

REACTIONS (2)
  - HEARING IMPAIRED [None]
  - PSORIASIS [None]
